FAERS Safety Report 15004391 (Version 2)
Quarter: 2018Q3

REPORT INFORMATION
  Report Type: Spontaneous
  Country: US (occurrence: US)
  Receive Date: 20180613
  Receipt Date: 20180808
  Transmission Date: 20181010
  Serious: No
  Sender: FDA-Public Use
  Company Number: US-PFIZER INC-2018239923

PATIENT
  Sex: Female

DRUGS (11)
  1. TETRACYCLINE HCL [Suspect]
     Active Substance: TETRACYCLINE HYDROCHLORIDE
     Dosage: UNK
  2. PERCOCET [Suspect]
     Active Substance: ACETAMINOPHEN\OXYCODONE HYDROCHLORIDE
     Dosage: UNK
  3. LEVAQUIN [Suspect]
     Active Substance: LEVOFLOXACIN
     Dosage: UNK
  4. CEFTIN [Suspect]
     Active Substance: CEFUROXIME AXETIL
     Dosage: UNK
  5. TICLID [Suspect]
     Active Substance: TICLOPIDINE HYDROCHLORIDE
     Dosage: UNK
  6. ZOSTRIX ORIGINAL STRENGTH [Suspect]
     Active Substance: CAPSAICIN
     Dosage: UNK
  7. PERCODAN [Suspect]
     Active Substance: ASPIRIN\OXYCODONE HYDROCHLORIDE
     Dosage: UNK
  8. ZETIA [Suspect]
     Active Substance: EZETIMIBE
     Dosage: UNK
  9. SPIRONOLACTONE. [Suspect]
     Active Substance: SPIRONOLACTONE
     Dosage: UNK
  10. NORVASC [Suspect]
     Active Substance: AMLODIPINE BESYLATE
     Dosage: UNK
  11. SEPTRA [Suspect]
     Active Substance: SULFAMETHOXAZOLE\TRIMETHOPRIM
     Dosage: UNK

REACTIONS (1)
  - Drug hypersensitivity [Unknown]
